FAERS Safety Report 9190972 (Version 1)
Quarter: 2013Q1

REPORT INFORMATION
  Report Type: Spontaneous
  Country: US (occurrence: None)
  Receive Date: 20120703
  Receipt Date: 20120703
  Transmission Date: 20140127
  Serious: Yes (Other)
  Sender: FDA-Public Use
  Company Number: PHEH2012US007975

PATIENT
  Sex: Female

DRUGS (3)
  1. GILENYA (FTY)CAPSULE [Suspect]
     Indication: MULTIPLE SCLEROSIS
     Route: 048
     Dates: start: 2011
  2. VITAMIN D (ERGOCALCIFEROL) [Concomitant]
  3. THYROID PREPARATIONS (NO INGREDIENTS/SUBSTANCES) [Concomitant]

REACTIONS (7)
  - Bronchopneumonia [None]
  - Bronchitis [None]
  - Malaise [None]
  - Fatigue [None]
  - Oropharyngeal pain [None]
  - Paraesthesia [None]
  - Blood pressure decreased [None]
